FAERS Safety Report 13049946 (Version 2)
Quarter: 2017Q1

REPORT INFORMATION
  Report Type: Report from Study
  Country: GB (occurrence: GB)
  Receive Date: 20161221
  Receipt Date: 20170112
  Transmission Date: 20170428
  Serious: Yes (Hospitalization, Other)
  Sender: FDA-Public Use
  Company Number: GB-AMGEN-GBRSL2016178230

PATIENT
  Age: 51 Year
  Sex: Female

DRUGS (1)
  1. REPATHA [Suspect]
     Active Substance: EVOLOCUMAB
     Indication: BLOOD CHOLESTEROL INCREASED
     Dosage: UNK, Q2WK
     Route: 065
     Dates: start: 20160906

REACTIONS (2)
  - Lower respiratory tract infection [Unknown]
  - Cerebral thrombosis [Recovered/Resolved]
